APPROVED DRUG PRODUCT: ROFLUMILAST
Active Ingredient: ROFLUMILAST
Strength: 250MCG
Dosage Form/Route: TABLET;ORAL
Application: A213298 | Product #002 | TE Code: AB
Applicant: AUROBINDO PHARMA LTD
Approved: Jan 31, 2025 | RLD: No | RS: No | Type: RX